FAERS Safety Report 9791170 (Version 1)
Quarter: 2013Q4

REPORT INFORMATION
  Report Type: Spontaneous
  Country: IT (occurrence: IT)
  Receive Date: 20131231
  Receipt Date: 20131231
  Transmission Date: 20140711
  Serious: Yes (Hospitalization)
  Sender: FDA-Public Use
  Company Number: PHHY2013IT153270

PATIENT
  Sex: Male

DRUGS (9)
  1. METFORMIN [Suspect]
     Dosage: 500 MG, QD
     Route: 048
     Dates: start: 20030101, end: 20131208
  2. GLIBOMET [Suspect]
     Indication: TYPE 2 DIABETES MELLITUS
     Dosage: 800 MG, QD
     Route: 048
     Dates: start: 20030101, end: 20131208
  3. TRENTAL [Concomitant]
     Dosage: 800 MG, UNK
     Route: 048
  4. CARDIRENE [Concomitant]
  5. AMLODIPINE [Concomitant]
     Dosage: 10 MG, UNK
     Route: 048
  6. POTASSIUM CANRENOATE [Concomitant]
     Dosage: 50 MG, UNK
     Route: 048
  7. TICLOPIDINE [Concomitant]
     Dosage: 500 MG, UNK
     Route: 048
  8. SIMVASTATIN [Concomitant]
     Dosage: 40 MG, UNK
     Route: 048
  9. ENALAPRIL [Concomitant]
     Dosage: 20 MG, UNK
     Route: 048

REACTIONS (1)
  - Hypoglycaemic coma [Recovered/Resolved]
